FAERS Safety Report 25812496 (Version 1)
Quarter: 2025Q3

REPORT INFORMATION
  Report Type: Spontaneous
  Country: BR (occurrence: BR)
  Receive Date: 20250917
  Receipt Date: 20250917
  Transmission Date: 20251020
  Serious: Yes (Other)
  Sender: ROCHE
  Company Number: BR-002147023-NVSC2025BR142642

PATIENT
  Age: 12 Year

DRUGS (1)
  1. XOLAIR [Suspect]
     Active Substance: OMALIZUMAB
     Indication: Asthma
     Route: 065

REACTIONS (5)
  - Anaphylactic reaction [Unknown]
  - Urticaria [Unknown]
  - Dyspnoea [Unknown]
  - Emotional disorder [Unknown]
  - Sleep disorder [Unknown]
